FAERS Safety Report 8862155 (Version 2)
Quarter: 2012Q4

REPORT INFORMATION
  Report Type: Report from Study
  Country: US (occurrence: US)
  Receive Date: 20121026
  Receipt Date: 20121221
  Transmission Date: 20130627
  Serious: Yes (Hospitalization)
  Sender: FDA-Public Use
  Company Number: US-VERTEX PHARMACEUTICAL INC.-AE-2012-007788

PATIENT
  Age: 49 Year
  Sex: Female
  Weight: 49 kg

DRUGS (11)
  1. VX-950 (TELAPREVIR) [Suspect]
     Indication: HEPATITIS C
     Dosage: 1125 mg, bid
     Route: 048
     Dates: start: 20120502, end: 20120524
  2. Z-PEGYLATED INTERFERON-2A [Suspect]
     Indication: HEPATITIS C
     Dosage: 180 ?g, UNK
     Route: 058
     Dates: start: 20120502, end: 20120524
  3. RIBAVIRIN [Suspect]
     Indication: HEPATITIS C
     Dosage: 1000 mg, qd
     Route: 048
     Dates: start: 20120502, end: 20120524
  4. XANAX [Concomitant]
  5. HYDROCODONE [Concomitant]
  6. FISH OIL [Concomitant]
  7. MORPHINE [Concomitant]
  8. MULTIVITAMINS [Concomitant]
  9. PAXIL [Concomitant]
  10. TRAZODONE [Concomitant]
  11. VITAMIN B12 [Concomitant]

REACTIONS (4)
  - Pneumonia [Recovered/Resolved]
  - Hypoxia [Recovered/Resolved]
  - Hypotension [Recovered/Resolved]
  - Anaemia [Recovered/Resolved]
